FAERS Safety Report 24071135 (Version 1)
Quarter: 2024Q3

REPORT INFORMATION
  Report Type: Spontaneous
  Country: US (occurrence: US)
  Receive Date: 20240710
  Receipt Date: 20240710
  Transmission Date: 20241017
  Serious: No
  Sender: ROCHE
  Company Number: US-ROCHE-3579991

PATIENT
  Sex: Male

DRUGS (2)
  1. ALECTINIB [Suspect]
     Active Substance: ALECTINIB
     Indication: Non-small cell lung cancer
     Route: 048
     Dates: start: 202404
  2. ALECTINIB [Suspect]
     Active Substance: ALECTINIB
     Indication: Diffuse large B-cell lymphoma

REACTIONS (2)
  - Blood bilirubin increased [Unknown]
  - Off label use [Unknown]
